FAERS Safety Report 20992861 (Version 1)
Quarter: 2022Q2

REPORT INFORMATION
  Report Type: Spontaneous
  Country: US (occurrence: None)
  Receive Date: 20220622
  Receipt Date: 20220622
  Transmission Date: 20220721
  Serious: Yes (Death, Other)
  Sender: FDA-Public Use
  Company Number: US-Hikma Pharmaceuticals USA Inc.-US-H14001-22-01582

PATIENT
  Age: 77 Year
  Sex: Male

DRUGS (1)
  1. INFUMORPH [Suspect]
     Active Substance: MORPHINE SULFATE
     Indication: Spinal pain
     Dosage: 3.003 MG DAILY (0.125 MG/HR)
     Route: 037

REACTIONS (2)
  - Death [Fatal]
  - Accidental underdose [Unknown]

NARRATIVE: CASE EVENT DATE: 20220218
